FAERS Safety Report 11132437 (Version 2)
Quarter: 2015Q4

REPORT INFORMATION
  Report Type: Spontaneous
  Country: US (occurrence: US)
  Receive Date: 20150522
  Receipt Date: 20151013
  Transmission Date: 20160304
  Serious: Yes (Hospitalization)
  Sender: FDA-Public Use
  Company Number: US-CELGENE-USA-2015052636

PATIENT
  Age: 77 Year
  Sex: Female

DRUGS (5)
  1. REVLIMID [Suspect]
     Active Substance: LENALIDOMIDE
     Indication: PLASMA CELL MYELOMA
     Route: 048
     Dates: start: 201206
  2. REVLIMID [Suspect]
     Active Substance: LENALIDOMIDE
     Route: 048
     Dates: start: 201501
  3. REVLIMID [Suspect]
     Active Substance: LENALIDOMIDE
     Route: 048
     Dates: start: 201507, end: 20150908
  4. REVLIMID [Suspect]
     Active Substance: LENALIDOMIDE
     Dosage: 25-10MG
     Route: 048
     Dates: start: 201208
  5. REVLIMID [Suspect]
     Active Substance: LENALIDOMIDE
     Route: 048
     Dates: start: 20150425, end: 20150507

REACTIONS (1)
  - Cardiac disorder [Not Recovered/Not Resolved]

NARRATIVE: CASE EVENT DATE: 20150508
